FAERS Safety Report 8596389-2 (Version None)
Quarter: 2012Q3

REPORT INFORMATION
  Report Type: 
  Country: None (occurrence: None)
  Receive Date: 20120815
  Receipt Date: 20120814
  Transmission Date: 20120928
  Serious: Yes (Other)
  Sender: FDA-Public Use
  Company Number: US-PFIZER INC-2011194792

PATIENT
  Age: 55 Year
  Sex: Female
  Weight: 60.3 kg

DRUGS (5)
  1. GEODON [Suspect]
     Indication: SUICIDE ATTEMPT
     Dosage: 120MG OR 160MG, DAILY
     Route: 048
     Dates: start: 19980101, end: 20040101
  2. TRICOR [Concomitant]
     Indication: BLOOD TRIGLYCERIDES INCREASED
     Dosage: 145 MG, DAILY
     Route: 048
  3. GEODON [Suspect]
     Dosage: 60 MG, DAILY
     Route: 048
  4. GEODON [Suspect]
     Dosage: UNK
     Route: 048
     Dates: end: 20110801
  5. DIOVAN [Concomitant]
     Indication: HYPERTENSION
     Dosage: 160 MG, DAILY
     Route: 048

REACTIONS (4)
  - WEIGHT INCREASED [None]
  - WEIGHT DECREASED [None]
  - BURNING SENSATION [None]
  - PSYCHOMOTOR HYPERACTIVITY [None]
